FAERS Safety Report 4823206-6 (Version None)
Quarter: 2005Q4

REPORT INFORMATION
  Report Type: 
  Country: None (occurrence: None)
  Receive Date: 20051104
  Receipt Date: 20051027
  Transmission Date: 20060501
  Serious: Yes (Hospitalization)
  Sender: FDA-Public Use
  Company Number: GBWYE871501AUG05

PATIENT
  Age: 78 Year
  Sex: Male

DRUGS (5)
  1. EFFEXOR XR [Suspect]
     Dosage: 225 MG 1X PER 1 DAY ORAL
     Route: 048
     Dates: start: 20040220
  2. LANSOPRAZOLE [Concomitant]
  3. OLANZAPINE [Concomitant]
  4. FELODIPINE [Concomitant]
  5. LACTULOSE [Concomitant]

REACTIONS (4)
  - BLADDER CANCER [None]
  - CORONARY ARTERY DISEASE [None]
  - MYOCARDIAL INFARCTION [None]
  - VENTRICULAR DYSFUNCTION [None]
